FAERS Safety Report 16669919 (Version 1)
Quarter: 2019Q3

REPORT INFORMATION
  Report Type: Spontaneous
  Country: US (occurrence: US)
  Receive Date: 20190805
  Receipt Date: 20190805
  Transmission Date: 20191004
  Serious: Yes (Hospitalization)
  Sender: FDA-Public Use
  Company Number: US-OTSUKA-2019_027869

PATIENT
  Age: 42 Year
  Sex: Female

DRUGS (3)
  1. ABILIFY [Suspect]
     Active Substance: ARIPIPRAZOLE
     Indication: SCHIZOPHRENIA
     Dosage: UNK
     Route: 065
  2. ABILIFY [Suspect]
     Active Substance: ARIPIPRAZOLE
     Indication: SUICIDAL BEHAVIOUR
  3. ABILIFY [Suspect]
     Active Substance: ARIPIPRAZOLE
     Indication: BIPOLAR DISORDER
     Dosage: 15 MG, QD
     Route: 065
     Dates: end: 201901

REACTIONS (4)
  - Suicidal ideation [Recovered/Resolved]
  - Hallucination, auditory [Recovered/Resolved]
  - Therapy cessation [Unknown]
  - Product use in unapproved indication [Unknown]

NARRATIVE: CASE EVENT DATE: 201901
